FAERS Safety Report 19834549 (Version 1)
Quarter: 2021Q3

REPORT INFORMATION
  Report Type: Spontaneous
  Country: JP (occurrence: JP)
  Receive Date: 20210914
  Receipt Date: 20210914
  Transmission Date: 20211014
  Serious: Yes (Other)
  Sender: FDA-Public Use
  Company Number: JP-ADVANZ PHARMA-202106004608

PATIENT

DRUGS (3)
  1. PREDNISOLONE. [Suspect]
     Active Substance: PREDNISOLONE
     Indication: SYSTEMIC LUPUS ERYTHEMATOSUS
     Dosage: 10 MG, QD
     Route: 048
     Dates: start: 1999
  2. PROGRAF [Concomitant]
     Active Substance: TACROLIMUS
     Indication: SYSTEMIC LUPUS ERYTHEMATOSUS
     Dosage: UNK
     Dates: start: 2005
  3. HYDROXYCHLOROQUINE SULFATE (AUTHORIZED GENERIC),PLAQUENIL [Suspect]
     Active Substance: HYDROXYCHLOROQUINE SULFATE
     Indication: SYSTEMIC LUPUS ERYTHEMATOSUS
     Dosage: 200 MG, QD (FILM?COATED TABLET)
     Route: 048
     Dates: start: 20161125, end: 20180812

REACTIONS (5)
  - Chorioretinopathy [Not Recovered/Not Resolved]
  - Visual impairment [Unknown]
  - Retinopathy [Not Recovered/Not Resolved]
  - Acquired pigmented retinopathy [Not Recovered/Not Resolved]
  - Serous retinal detachment [Unknown]

NARRATIVE: CASE EVENT DATE: 20180808
